FAERS Safety Report 9457713 (Version 1)
Quarter: 2013Q3

REPORT INFORMATION
  Report Type: Report from Study
  Country: CZ (occurrence: CZ)
  Receive Date: 20130814
  Receipt Date: 20130814
  Transmission Date: 20140515
  Serious: Yes (Disabling)
  Sender: FDA-Public Use
  Company Number: CZ-CELGENEUS-217-21880-13074783

PATIENT
  Age: 77 Year
  Sex: Female
  Weight: 82 kg

DRUGS (4)
  1. REVLIMID [Suspect]
     Indication: PLASMA CELL MYELOMA
     Dosage: 25 MILLIGRAM
     Route: 048
     Dates: end: 20120312
  2. DEXAMETHASONE [Suspect]
     Indication: PLASMA CELL MYELOMA
     Route: 048
     Dates: end: 20120312
  3. THALIDOMIDE [Suspect]
     Indication: PLASMA CELL MYELOMA
     Dosage: UNKNOWN
     Dates: start: 200905, end: 201002
  4. HEPARIN LMW [Concomitant]
     Indication: PROPHYLAXIS
     Route: 065
     Dates: start: 20110720

REACTIONS (1)
  - Breast cancer [Not Recovered/Not Resolved]
